FAERS Safety Report 5583348-7 (Version None)
Quarter: 2008Q1

REPORT INFORMATION
  Report Type: 
  Country: None (occurrence: None)
  Receive Date: 20080107
  Receipt Date: 20071227
  Transmission Date: 20080703
  Serious: Yes (Hospitalization, Other)
  Sender: FDA-Public Use
  Company Number: JP-PFIZER INC-2007087912

PATIENT
  Sex: Male
  Weight: 60 kg

DRUGS (4)
  1. AZULFIDINE EN-TABS [Suspect]
     Indication: RHEUMATOID ARTHRITIS
     Route: 048
     Dates: start: 20050201, end: 20070820
  2. AMLODIN [Suspect]
     Indication: HYPERTENSION
     Route: 048
  3. SOLETON [Suspect]
     Indication: RHEUMATOID ARTHRITIS
     Route: 048
     Dates: start: 20031001, end: 20070806
  4. OLMETEC [Suspect]
     Indication: HYPERTENSION
     Route: 048

REACTIONS (4)
  - GLOMERULONEPHRITIS MEMBRANOUS [None]
  - IGA NEPHROPATHY [None]
  - NEPHROTIC SYNDROME [None]
  - PLATELET COUNT DECREASED [None]
